APPROVED DRUG PRODUCT: SONAZINE
Active Ingredient: CHLORPROMAZINE HYDROCHLORIDE
Strength: 10MG/5ML
Dosage Form/Route: SYRUP;ORAL
Application: A083040 | Product #001
Applicant: CHARTWELL RX SCIENCES LLC
Approved: Approved Prior to Jan 1, 1982 | RLD: No | RS: No | Type: DISCN